FAERS Safety Report 21446819 (Version 1)
Quarter: 2022Q4

REPORT INFORMATION
  Report Type: Spontaneous
  Country: DE (occurrence: DE)
  Receive Date: 20221012
  Receipt Date: 20221012
  Transmission Date: 20230113
  Serious: Yes (Hospitalization)
  Sender: FDA-Public Use
  Company Number: DE-ADRED-07926-01

PATIENT
  Age: 48 Year
  Sex: Female
  Weight: 80 kg

DRUGS (12)
  1. IBUPROFEN [Suspect]
     Active Substance: IBUPROFEN
     Indication: Product used for unknown indication
     Dosage: 1800 MILLIGRAM DAILY; 600 MG, 1-0-1-1
  2. TRAMADOL [Suspect]
     Active Substance: TRAMADOL
     Indication: Product used for unknown indication
     Dosage: REQUIREMENT
  3. DARIFENACIN [Concomitant]
     Active Substance: DARIFENACIN
     Indication: Product used for unknown indication
     Dosage: 7.5 MG, REQUIREMENT
  4. CHOLECALCIFEROL [Concomitant]
     Active Substance: CHOLECALCIFEROL
     Indication: Product used for unknown indication
     Dosage: 20000 IU, 2 TIMES PER WEEK
  5. RAMIPRIL [Concomitant]
     Active Substance: RAMIPRIL
     Indication: Product used for unknown indication
     Dosage: 5 MILLIGRAM DAILY; 5 MG, 1-0-0-0
  6. METAMIZOL [Concomitant]
     Active Substance: METAMIZOLE SODIUM
     Indication: Product used for unknown indication
     Dosage: 500 MG, 100 DROPS PER DAY, DROPS
  7. Cyanocobalamin (Vitamin B12)/Pyridoxin (Vitamin B6)/Thiamin (Vitamin B [Concomitant]
     Indication: Product used for unknown indication
     Dosage: 0-0-1-0
  8. DIETARY SUPPLEMENT\HERBALS\MILK THISTLE [Concomitant]
     Active Substance: DIETARY SUPPLEMENT\HERBALS\MILK THISTLE
     Indication: Product used for unknown indication
     Dosage: 167 MILLIGRAM DAILY; 167 MG, 0-0-1-0
  9. DIENOGEST\ETHINYL ESTRADIOL [Concomitant]
     Active Substance: DIENOGEST\ETHINYL ESTRADIOL
     Indication: Product used for unknown indication
     Dosage: 0-0-0-1
  10. MAGNESIUM [Concomitant]
     Active Substance: MAGNESIUM
     Indication: Product used for unknown indication
     Dosage: 400 MILLIGRAM DAILY; 400 MG, 0-1-0-0
  11. Angocin Anti-Infekt N [Concomitant]
     Indication: Product used for unknown indication
     Dosage: 5-0-0-0
  12. ZINC ASPARTATE [Concomitant]
     Active Substance: ZINC ASPARTATE
     Indication: Product used for unknown indication
     Dosage: 0-1-0-0

REACTIONS (10)
  - Tachypnoea [Unknown]
  - Acute respiratory failure [Unknown]
  - Systemic infection [Unknown]
  - Cyanosis [Unknown]
  - Hypoxia [Unknown]
  - Cerebral haemorrhage [Unknown]
  - Renal impairment [Unknown]
  - Bradypnoea [Unknown]
  - General physical health deterioration [Unknown]
  - Dyspnoea [Unknown]
